FAERS Safety Report 6195218-4 (Version None)
Quarter: 2009Q2

REPORT INFORMATION
  Report Type: 
  Country: None (occurrence: None)
  Receive Date: 20090519
  Receipt Date: 20090513
  Transmission Date: 20091009
  Serious: Yes (Disabling)
  Sender: FDA-Public Use
  Company Number: JP-MERCK-0905USA01912

PATIENT
  Age: 67 Year
  Sex: Female

DRUGS (5)
  1. HYZAAR [Suspect]
     Route: 048
     Dates: start: 20081104
  2. AMARYL [Concomitant]
     Route: 048
  3. BIOFERMIN [Concomitant]
     Route: 048
  4. ZANTAC [Concomitant]
     Route: 048
  5. CELECOX [Concomitant]
     Route: 048

REACTIONS (1)
  - GLYCOSYLATED HAEMOGLOBIN INCREASED [None]
